FAERS Safety Report 6062830-2 (Version None)
Quarter: 2009Q1

REPORT INFORMATION
  Report Type: 
  Country: None (occurrence: None)
  Receive Date: 20090203
  Receipt Date: 20090123
  Transmission Date: 20090719
  Serious: Yes (Death)
  Sender: FDA-Public Use
  Company Number: NO-AMGEN-US331250

PATIENT
  Sex: Female

DRUGS (7)
  1. ENBREL [Suspect]
     Indication: JUVENILE ARTHRITIS
     Route: 058
     Dates: start: 20080508, end: 20080523
  2. METHOTREXATE [Suspect]
     Indication: JUVENILE ARTHRITIS
     Route: 048
  3. NEXIUM [Concomitant]
     Route: 048
  4. BRUFEN - SLOW RELEASE [Concomitant]
     Indication: JUVENILE ARTHRITIS
     Route: 048
  5. TEMGESIC [Concomitant]
     Dosage: 1 PATCH CHANGED EVERY WEEK, 5 MICROGRAMS/HOUR
     Route: 062
  6. FOLIC ACID [Concomitant]
     Indication: PROPHYLAXIS
     Route: 048
  7. ATORVASTATIN [Concomitant]
     Indication: HYPERLIPIDAEMIA
     Route: 048

REACTIONS (3)
  - ASCITES [None]
  - COLON CANCER METASTATIC [None]
  - METASTATIC NEOPLASM [None]
